FAERS Safety Report 8159666-5 (Version None)
Quarter: 2012Q1

REPORT INFORMATION
  Report Type: 
  Country: None (occurrence: None)
  Receive Date: 20120223
  Receipt Date: 20120220
  Transmission Date: 20120608
  Serious: Yes (Hospitalization)
  Sender: FDA-Public Use
  Company Number: US-ACTELION-A-US2010-41357

PATIENT

DRUGS (5)
  1. TRACLEER [Suspect]
     Indication: PULMONARY ARTERIAL HYPERTENSION
     Dosage: UNK
     Route: 048
     Dates: start: 20070801
  2. EPOPROSTENOL SODIUM [Suspect]
     Indication: PULMONARY ARTERIAL HYPERTENSION
     Dosage: 30 NG/KG, PER MIN
     Route: 042
     Dates: start: 20100614
  3. REVATIO [Concomitant]
  4. FLOLAN [Concomitant]
  5. COUMADIN [Concomitant]

REACTIONS (4)
  - RASH PUSTULAR [None]
  - CATHETER SITE INFECTION [None]
  - SEPSIS [None]
  - DEVICE RELATED INFECTION [None]
